FAERS Safety Report 4764650-5 (Version None)
Quarter: 2005Q3

REPORT INFORMATION
  Report Type: 
  Country: None (occurrence: None)
  Receive Date: 20050909
  Receipt Date: 20050826
  Transmission Date: 20060218
  Serious: Yes (Other)
  Sender: FDA-Public Use
  Company Number: JP-GLAXOSMITHKLINE-B0391880A

PATIENT
  Age: 52 Year
  Sex: Male
  Weight: 64 kg

DRUGS (16)
  1. ALKERAN [Suspect]
     Indication: STEM CELL TRANSPLANT
     Route: 042
     Dates: start: 20050528, end: 20050529
  2. GRAN [Suspect]
     Route: 042
     Dates: start: 20050602, end: 20050613
  3. LOXONIN [Suspect]
     Route: 048
     Dates: start: 20050605, end: 20050613
  4. ROPION [Suspect]
     Route: 042
     Dates: start: 20050607, end: 20050613
  5. SOLU-CORTEF [Concomitant]
  6. HAPTOGLOBIN [Concomitant]
  7. KYTRIL [Concomitant]
  8. IMMUNE GLOBULIN INTRAVENOUS (HUMAN) [Concomitant]
  9. MAXIPIME [Concomitant]
  10. MEROPEN [Concomitant]
  11. PRODIF [Concomitant]
  12. CRAVIT [Concomitant]
  13. FUNGUARD [Concomitant]
  14. VANCOMYCIN [Concomitant]
  15. COTRIM [Concomitant]
  16. PARIET [Concomitant]

REACTIONS (3)
  - DIARRHOEA [None]
  - HEPATITIS ACUTE [None]
  - RENAL FAILURE ACUTE [None]
